FAERS Safety Report 25274892 (Version 1)
Quarter: 2025Q2

REPORT INFORMATION
  Report Type: Spontaneous
  Country: US (occurrence: None)
  Receive Date: 20250506
  Receipt Date: 20250506
  Transmission Date: 20250716
  Serious: Yes (Hospitalization)
  Sender: INCYTE
  Company Number: US-002147023-NVSC2025US067354

PATIENT
  Age: 11 Year

DRUGS (4)
  1. JAKAFI [Suspect]
     Active Substance: RUXOLITINIB
     Indication: Fungal infection
     Dosage: 20 MG, QD
     Route: 065
  2. JAKAFI [Suspect]
     Active Substance: RUXOLITINIB
     Indication: Alopecia
     Dosage: 30 MG, QD (AFTER 4.5M INCREASED)
     Route: 065
  3. JAKAFI [Suspect]
     Active Substance: RUXOLITINIB
     Indication: Aphthous ulcer
     Dosage: 20 MG, QD (AFTER 11M REDUCED)
     Route: 065
  4. JAKAFI [Suspect]
     Active Substance: RUXOLITINIB
     Indication: Immune system disorder

REACTIONS (3)
  - Herpes zoster [Unknown]
  - Metapneumovirus pneumonia [Unknown]
  - Drug effective for unapproved indication [Unknown]
